FAERS Safety Report 10903054 (Version 1)
Quarter: 2015Q1

REPORT INFORMATION
  Report Type: Spontaneous
  Country: DZ (occurrence: DZ)
  Receive Date: 20150311
  Receipt Date: 20150311
  Transmission Date: 20150721
  Serious: Yes (Death)
  Sender: FDA-Public Use
  Company Number: DZ-ROCHE-1549568

PATIENT
  Sex: Male

DRUGS (1)
  1. METALYSE [Suspect]
     Active Substance: TENECTEPLASE
     Indication: MYOCARDIAL INFARCTION
     Route: 065

REACTIONS (1)
  - Ventricular fibrillation [Fatal]
